FAERS Safety Report 22109183 (Version 1)
Quarter: 2023Q1

REPORT INFORMATION
  Report Type: Spontaneous
  Country: US (occurrence: None)
  Receive Date: 20230316
  Receipt Date: 20230316
  Transmission Date: 20230418
  Serious: Yes (Disabling, Other)
  Sender: FDA-Public Use
  Company Number: None

PATIENT
  Age: 49 Year
  Sex: Female
  Weight: 63.5 kg

DRUGS (1)
  1. DECADRON [Suspect]
     Active Substance: DEXAMETHASONE

REACTIONS (2)
  - Osteonecrosis [None]
  - Hip fracture [None]

NARRATIVE: CASE EVENT DATE: 20230111
